FAERS Safety Report 15975749 (Version 1)
Quarter: 2019Q1

REPORT INFORMATION
  Report Type: Spontaneous
  Country: US (occurrence: US)
  Receive Date: 20190218
  Receipt Date: 20190218
  Transmission Date: 20190418
  Serious: No
  Sender: FDA-Public Use
  Company Number: US-DUCHESNAY INC.-2062779

PATIENT
  Age: 19 Year
  Sex: Female

DRUGS (1)
  1. BONJESTA [Suspect]
     Active Substance: DOXYLAMINE SUCCINATE\PYRIDOXINE HYDROCHLORIDE
     Indication: NAUSEA
     Route: 048

REACTIONS (2)
  - Somnolence [Unknown]
  - Nausea [Unknown]
